FAERS Safety Report 7481172-1 (Version None)
Quarter: 2011Q2

REPORT INFORMATION
  Report Type: 
  Country: None (occurrence: None)
  Receive Date: 20110512
  Receipt Date: 20110512
  Transmission Date: 20111010
  Serious: No
  Sender: FDA-Public Use
  Company Number: None

PATIENT
  Sex: Female
  Weight: 52.6173 kg

DRUGS (1)
  1. MINOXIDIL (FOR MEN) [Suspect]
     Indication: ALOPECIA
     Dosage: 1ML LINE TWICE DAILY ON SCALP
     Dates: start: 20110401

REACTIONS (1)
  - WEIGHT INCREASED [None]
